FAERS Safety Report 5938454-1 (Version None)
Quarter: 2008Q4

REPORT INFORMATION
  Report Type: 
  Country: None (occurrence: None)
  Receive Date: 20081103
  Receipt Date: 20081023
  Transmission Date: 20090506
  Serious: Yes (Death, Other)
  Sender: FDA-Public Use
  Company Number: US-AMGEN-QUU315160

PATIENT
  Age: 82 Year
  Sex: Male

DRUGS (3)
  1. NEULASTA [Suspect]
     Indication: CHEMOTHERAPY
     Route: 065
     Dates: start: 20081010
  2. CARBOPLATIN [Concomitant]
     Dates: start: 20081009, end: 20081009
  3. AVASTIN [Concomitant]
     Dates: start: 20081009, end: 20081009

REACTIONS (4)
  - ASTHENIA [None]
  - DEATH [None]
  - FATIGUE [None]
  - THERAPEUTIC RESPONSE DECREASED [None]
